FAERS Safety Report 25533098 (Version 2)
Quarter: 2025Q3

REPORT INFORMATION
  Report Type: Spontaneous
  Country: US (occurrence: US)
  Receive Date: 20250709
  Receipt Date: 20250718
  Transmission Date: 20251020
  Serious: Yes (Other)
  Sender: ABBVIE
  Company Number: US-ABBVIE-6361444

PATIENT
  Sex: Female

DRUGS (1)
  1. MAVYRET [Suspect]
     Active Substance: GLECAPREVIR\PIBRENTASVIR
     Indication: Chronic hepatitis C
     Route: 048

REACTIONS (16)
  - Neoplasm malignant [Unknown]
  - Device loosening [Unknown]
  - Brain stem syndrome [Unknown]
  - Spinal disorder [Unknown]
  - Injury associated with device [Unknown]
  - Spinal column injury [Unknown]
  - Face injury [Unknown]
  - Facial discomfort [Unknown]
  - Intervertebral disc protrusion [Unknown]
  - Nerve compression [Unknown]
  - Pain [Unknown]
  - Inflammation [Unknown]
  - Intraductal papilloma of breast [Unknown]
  - Fatigue [Unknown]
  - Abdominal pain upper [Unknown]
  - Device fastener issue [Unknown]

NARRATIVE: CASE EVENT DATE: 20250101
